FAERS Safety Report 20572013 (Version 1)
Quarter: 2022Q1

REPORT INFORMATION
  Report Type: Other
  Country: CN (occurrence: None)
  Receive Date: 20220309
  Receipt Date: 20220309
  Transmission Date: 20220423
  Serious: Yes (Other)
  Sender: FDA-Public Use
  Company Number: CN-ROCHE-3038952

PATIENT
  Age: 60 Year
  Sex: Female

DRUGS (7)
  1. VEMURAFENIB [Suspect]
     Active Substance: VEMURAFENIB
     Indication: Breast cancer
     Route: 065
     Dates: start: 20190530
  2. VEMURAFENIB [Suspect]
     Active Substance: VEMURAFENIB
     Route: 065
     Dates: start: 20190625
  3. VEMURAFENIB [Suspect]
     Active Substance: VEMURAFENIB
     Route: 065
     Dates: start: 20190801
  4. PACLITAXEL [Suspect]
     Active Substance: PACLITAXEL
     Indication: Breast cancer
     Route: 065
     Dates: start: 20190530
  5. PACLITAXEL [Suspect]
     Active Substance: PACLITAXEL
     Route: 065
     Dates: start: 20190625
  6. CAPECITABINE [Concomitant]
     Active Substance: CAPECITABINE
     Indication: Triple negative breast cancer
     Dosage: 3 CYCLES
     Route: 065
     Dates: start: 20180810
  7. VINORELBINE [Concomitant]
     Active Substance: VINORELBINE TARTRATE
     Indication: Triple negative breast cancer
     Route: 048

REACTIONS (4)
  - Myelosuppression [Unknown]
  - Diarrhoea [Unknown]
  - Mouth ulceration [Unknown]
  - Off label use [Unknown]
